FAERS Safety Report 4882861-5 (Version None)
Quarter: 2005Q4

REPORT INFORMATION
  Report Type: 
  Country: None (occurrence: None)
  Receive Date: 20051201
  Receipt Date: 20050926
  Transmission Date: 20060501
  Serious: No
  Sender: FDA-Public Use
  Company Number: 2005PV002531

PATIENT
  Age: 53 Year
  Sex: Female
  Weight: 94.3482 kg

DRUGS (4)
  1. BYETTA [Suspect]
     Indication: DIABETES MELLITUS NON-INSULIN-DEPENDENT
     Dosage: SEEI MAGE
     Dates: start: 20050825, end: 20050909
  2. BYETTA [Suspect]
     Indication: DIABETES MELLITUS NON-INSULIN-DEPENDENT
     Dosage: SEEI MAGE
     Dates: start: 20050912
  3. GLUCOVANCE [Concomitant]
  4. METFORMIN [Concomitant]

REACTIONS (4)
  - MALAISE [None]
  - NAUSEA [None]
  - VOMITING [None]
  - WEIGHT DECREASED [None]
